FAERS Safety Report 8063675-4 (Version None)
Quarter: 2012Q1

REPORT INFORMATION
  Report Type: 
  Country: None (occurrence: None)
  Receive Date: 20120118
  Receipt Date: 20120103
  Transmission Date: 20120608
  Serious: Yes (Other)
  Sender: FDA-Public Use
  Company Number: B0775191A

PATIENT
  Sex: Female

DRUGS (2)
  1. PAROXETINE HYDROCHLORIDE [Suspect]
     Indication: DEPRESSION
     Dates: start: 20080101
  2. OXAZEPAM [Concomitant]

REACTIONS (13)
  - HOMICIDE [None]
  - OVERDOSE [None]
  - STRESS [None]
  - CONDITION AGGRAVATED [None]
  - DELUSION [None]
  - DEPRESSION [None]
  - WOUND [None]
  - DEPERSONALISATION [None]
  - PARENT-CHILD PROBLEM [None]
  - AGGRESSION [None]
  - INSOMNIA [None]
  - SUICIDE ATTEMPT [None]
  - FEELING ABNORMAL [None]
